FAERS Safety Report 9468258 (Version 1)
Quarter: 2013Q3

REPORT INFORMATION
  Report Type: Spontaneous
  Country: US (occurrence: US)
  Receive Date: 20130821
  Receipt Date: 20130821
  Transmission Date: 20140515
  Serious: No
  Sender: FDA-Public Use
  Company Number: US-PFIZER INC-2013241473

PATIENT
  Age: 66 Year
  Sex: Female
  Weight: 52.61 kg

DRUGS (2)
  1. ATORVASTATIN CALCIUM [Suspect]
     Indication: BLOOD CHOLESTEROL INCREASED
     Dosage: 40 MG, DAILY
     Route: 048
     Dates: start: 201301, end: 2013
  2. ATORVASTATIN CALCIUM [Suspect]
     Dosage: 20 MG, DAILY
     Route: 048
     Dates: start: 2013

REACTIONS (4)
  - Influenza like illness [Recovering/Resolving]
  - Nausea [Recovering/Resolving]
  - Headache [Recovering/Resolving]
  - Malaise [Recovering/Resolving]
